FAERS Safety Report 21440946 (Version 1)
Quarter: 2022Q4

REPORT INFORMATION
  Report Type: Spontaneous
  Country: DK (occurrence: DK)
  Receive Date: 20221011
  Receipt Date: 20221011
  Transmission Date: 20230112
  Serious: Yes (Other)
  Sender: FDA-Public Use
  Company Number: DK-ANIPHARMA-2022-DK-000016

PATIENT
  Age: 70 Year
  Sex: Female

DRUGS (2)
  1. CANDESARTAN CILEXETIL AND HYDROCHLOROTHIAZIDE [Suspect]
     Active Substance: CANDESARTAN CILEXETIL\HYDROCHLOROTHIAZIDE
     Indication: Hypertension
     Dosage: DOSAGE: UNKNOWN, STRENGTH: UNKNOWN
     Route: 048
     Dates: start: 2011
  2. HYDROCHLOROTHIAZIDE\LOSARTAN POTASSIUM [Suspect]
     Active Substance: HYDROCHLOROTHIAZIDE\LOSARTAN POTASSIUM
     Dosage: STRENGTH: 100+12.5 MG, 1 DF DAILY
     Route: 048
     Dates: start: 2011, end: 20201217

REACTIONS (1)
  - Basal cell carcinoma [Not Recovered/Not Resolved]

NARRATIVE: CASE EVENT DATE: 20110101
